FAERS Safety Report 19841582 (Version 1)
Quarter: 2021Q3

REPORT INFORMATION
  Report Type: Spontaneous
  Country: DE (occurrence: DE)
  Receive Date: 20210915
  Receipt Date: 20210915
  Transmission Date: 20211014
  Serious: Yes (Hospitalization)
  Sender: FDA-Public Use
  Company Number: DE-ANIPHARMA-2021-DE-000204

PATIENT
  Age: 79 Year
  Sex: Male
  Weight: 72 kg

DRUGS (8)
  1. ALFACALCIDOL [Concomitant]
     Active Substance: ALFACALCIDOL
     Dosage: .25 UG QD
     Route: 048
  2. ACETYLSALICYLSAEURE [Suspect]
     Active Substance: ASPIRIN
     Dosage: 100 MG QD
     Route: 048
  3. TORASEMID [Suspect]
     Active Substance: TORSEMIDE
     Dosage: 10 MG QD
     Route: 048
  4. CANDESARTAN CILEXETIL. [Suspect]
     Active Substance: CANDESARTAN CILEXETIL
     Indication: PRODUCT USED FOR UNKNOWN INDICATION
     Dosage: 32 MG QD
     Route: 048
  5. CARVEDILOL. [Concomitant]
     Active Substance: CARVEDILOL
     Dosage: 25 MG UNK
     Route: 048
  6. ATORVASTATIN [Concomitant]
     Active Substance: ATORVASTATIN
     Dosage: 30 MG UNK
     Route: 048
  7. BICANORM [Concomitant]
     Active Substance: SODIUM BICARBONATE
     Dosage: 1 MG QD
     Route: 048
  8. FEBUXOSTAT. [Concomitant]
     Active Substance: FEBUXOSTAT
     Dosage: 80 MG QD
     Route: 048

REACTIONS (4)
  - Sleep disorder due to general medical condition, insomnia type [Unknown]
  - Back pain [Unknown]
  - Pain [Unknown]
  - Insomnia [Unknown]
